FAERS Safety Report 16237472 (Version 2)
Quarter: 2019Q2

REPORT INFORMATION
  Report Type: Spontaneous
  Country: BR (occurrence: BR)
  Receive Date: 20190425
  Receipt Date: 20190527
  Transmission Date: 20190711
  Serious: Yes (Death, Hospitalization)
  Sender: FDA-Public Use
  Company Number: BR-B.I. PHARMACEUTICALS,INC./RIDGEFIELD-2019-BI-018739

PATIENT
  Age: 92 Year
  Sex: Female
  Weight: 56 kg

DRUGS (6)
  1. PURAN [Concomitant]
     Active Substance: LEVOTHYROXINE SODIUM
     Indication: THYROID DISORDER
     Route: 048
     Dates: start: 2016
  2. SELOZOK [Concomitant]
     Active Substance: METOPROLOL SUCCINATE
     Indication: BLOOD PRESSURE MEASUREMENT
  3. DIOVAN AMLO [Concomitant]
     Active Substance: AMLODIPINE\VALSARTAN
     Indication: ARRHYTHMIA
     Dosage: DOSE: 80/5 MILLIGRAM
     Route: 048
     Dates: start: 2014, end: 201811
  4. PRADAXA [Suspect]
     Active Substance: DABIGATRAN ETEXILATE MESYLATE
     Indication: THROMBOSIS PROPHYLAXIS
     Dosage: START DATE: 4 OR 5 YEARS AGO
     Route: 048
     Dates: end: 201903
  5. CLORIDRATO DE AMIODARONA [Concomitant]
     Indication: ARRHYTHMIA
     Route: 048
     Dates: start: 2015
  6. SELOZOK [Concomitant]
     Active Substance: METOPROLOL SUCCINATE
     Indication: ARRHYTHMIA
     Route: 048
     Dates: start: 201811

REACTIONS (5)
  - Cerebrovascular accident [Fatal]
  - Lung disorder [Fatal]
  - Blood creatinine increased [Fatal]
  - Pneumonia [Recovered/Resolved]
  - Nosocomial infection [Recovered/Resolved]

NARRATIVE: CASE EVENT DATE: 201811
